FAERS Safety Report 5883990-X (Version None)
Quarter: 2008Q3

REPORT INFORMATION
  Report Type: 
  Country: None (occurrence: None)
  Receive Date: 20080915
  Receipt Date: 20080902
  Transmission Date: 20090109
  Serious: Yes (Hospitalization)
  Sender: FDA-Public Use
  Company Number: NL-ROCHE-584364

PATIENT
  Weight: 88 kg

DRUGS (6)
  1. CAPECITABINE [Suspect]
     Indication: GASTRIC CANCER
     Dosage: FROM DAY 1-14 EVERY 3 WEEKS, DOSAGE PER PROTOCOL
     Route: 065
     Dates: start: 20080707
  2. EPIRUBICIN [Suspect]
     Dosage: ON DAY 1 EVERY THREE WEEKS, DOSAGE PER PROTOCOL
     Route: 042
  3. CISPLATIN [Suspect]
     Dosage: ON DAY 1 EVERY 3 WEEKS, DOSAGE PER PROTOCOL
     Route: 042
  4. PYRIDOXIN [Concomitant]
     Route: 048
  5. VENTOLIN [Concomitant]
  6. NEXIUM [Concomitant]
     Route: 048

REACTIONS (2)
  - CHRONIC OBSTRUCTIVE PULMONARY DISEASE [None]
  - PULMONARY EMBOLISM [None]
